FAERS Safety Report 16894558 (Version 4)
Quarter: 2024Q2

REPORT INFORMATION
  Report Type: Spontaneous
  Country: US (occurrence: US)
  Receive Date: 20191008
  Receipt Date: 20240409
  Transmission Date: 20240716
  Serious: No
  Sender: FDA-Public Use
  Company Number: US-PFIZER INC-2019430220

PATIENT
  Sex: Female
  Weight: 127 kg

DRUGS (3)
  1. ELETRIPTAN [Suspect]
     Active Substance: ELETRIPTAN
     Indication: Migraine
     Dosage: 40 MG, PRN (AS NEEDED)
     Route: 048
     Dates: start: 201908
  2. RELPAX [Suspect]
     Active Substance: ELETRIPTAN HYDROBROMIDE
     Indication: Migraine
     Dosage: 40 MG, PRN AS NEEDED
     Route: 048
  3. RELPAX [Suspect]
     Active Substance: ELETRIPTAN HYDROBROMIDE
     Indication: Swelling
     Dosage: 20 MG
     Route: 065

REACTIONS (4)
  - Therapeutic product effect incomplete [Unknown]
  - Product dispensing error [Unknown]
  - Therapeutic product effect delayed [Unknown]
  - Product substitution issue [Unknown]
